FAERS Safety Report 7304554-7 (Version None)
Quarter: 2011Q1

REPORT INFORMATION
  Report Type: 
  Country: None (occurrence: None)
  Receive Date: 20110222
  Receipt Date: 20101122
  Transmission Date: 20110831
  Serious: Yes (Other)
  Sender: FDA-Public Use
  Company Number: PHHY2010ES90552

PATIENT
  Age: 58 Year
  Sex: Male

DRUGS (2)
  1. BORTEZOMIB [Concomitant]
     Indication: MULTIPLE MYELOMA
  2. ZOLEDRONATE [Suspect]
     Indication: MULTIPLE MYELOMA
     Route: 042

REACTIONS (5)
  - OSTEONECROSIS OF JAW [None]
  - BONE DISORDER [None]
  - OSTEITIS [None]
  - GINGIVAL ULCERATION [None]
  - OSTEOSCLEROSIS [None]
